FAERS Safety Report 6082701-5 (Version None)
Quarter: 2009Q1

REPORT INFORMATION
  Report Type: 
  Country: None (occurrence: None)
  Receive Date: 20090218
  Receipt Date: 20090210
  Transmission Date: 20090719
  Serious: Yes (Hospitalization)
  Sender: FDA-Public Use
  Company Number: PHHY2009FR04986

PATIENT
  Age: 16 Year
  Sex: Female

DRUGS (1)
  1. PROLEUKIN [Suspect]
     Indication: RENAL CANCER
     Route: 042

REACTIONS (4)
  - ASTHENIA [None]
  - BLOOD CREATININE INCREASED [None]
  - DIARRHOEA [None]
  - HYPONATRAEMIA [None]
